FAERS Safety Report 4505460-3 (Version None)
Quarter: 2004Q4

REPORT INFORMATION
  Report Type: 
  Country: None (occurrence: None)
  Receive Date: 20041119
  Receipt Date: 20041027
  Transmission Date: 20050328
  Serious: Yes (Other)
  Sender: FDA-Public Use
  Company Number: PHBS2004CL14437

PATIENT
  Age: 39 Year
  Sex: Male
  Weight: 70 kg

DRUGS (4)
  1. TEGRETOL [Suspect]
     Indication: DEPRESSION
     Dosage: 200 MG/DAY
     Route: 048
     Dates: start: 20040701, end: 20041001
  2. TEGRETOL [Suspect]
     Dosage: 400 MG/DAY
     Route: 048
     Dates: start: 20041001
  3. CARBORON [Concomitant]
     Route: 065
  4. RAVOTRIL [Concomitant]

REACTIONS (6)
  - ANAEMIA [None]
  - CONSTIPATION [None]
  - DRY MOUTH [None]
  - HYPERSENSITIVITY [None]
  - REFLUX GASTRITIS [None]
  - WEIGHT DECREASED [None]
